FAERS Safety Report 5190093-9 (Version None)
Quarter: 2006Q4

REPORT INFORMATION
  Report Type: 
  Country: None (occurrence: None)
  Receive Date: 20061222
  Receipt Date: 20061201
  Transmission Date: 20070319
  Serious: Yes (Death)
  Sender: FDA-Public Use
  Company Number: US-JNJFOC-20050901076

PATIENT
  Sex: Female
  Weight: 113.4 kg

DRUGS (2)
  1. ORTHO EVRA [Suspect]
     Indication: DYSMENORRHOEA
     Route: 062
     Dates: start: 20040801, end: 20050128
  2. DYAZIDE [Concomitant]

REACTIONS (1)
  - PULMONARY EMBOLISM [None]
